FAERS Safety Report 17565284 (Version 1)
Quarter: 2020Q1

REPORT INFORMATION
  Report Type: Other
  Country: GB (occurrence: GB)
  Receive Date: 20200320
  Receipt Date: 20200320
  Transmission Date: 20200409
  Serious: No
  Sender: FDA-Public Use
  Company Number: GB-LUPIN PHARMACEUTICALS INC.-2019-05549

PATIENT
  Age: 42 Year
  Sex: Female
  Weight: 76 kg

DRUGS (1)
  1. SERTRALINE [Suspect]
     Active Substance: SERTRALINE HYDROCHLORIDE
     Indication: ANXIETY
     Dosage: 50 MILLIGRAM, SINGLE (STRENGTH: 50 MG)
     Route: 048
     Dates: start: 20190319

REACTIONS (2)
  - Flat affect [Not Recovered/Not Resolved]
  - Decreased interest [Unknown]

NARRATIVE: CASE EVENT DATE: 20190611
